FAERS Safety Report 5239448-4 (Version None)
Quarter: 2007Q1

REPORT INFORMATION
  Report Type: 
  Country: None (occurrence: None)
  Receive Date: 20070216
  Receipt Date: 20070206
  Transmission Date: 20070707
  Serious: Yes (Other)
  Sender: FDA-Public Use
  Company Number: CA-AVENTIS-200621512GDDC

PATIENT
  Age: 67 Year
  Sex: Female
  Weight: 100 kg

DRUGS (6)
  1. FLAGYL [Suspect]
     Route: 048
     Dates: start: 19980623, end: 19980626
  2. ARTHROTEC [Suspect]
     Indication: ARTHRITIS
     Route: 048
     Dates: start: 19980610, end: 19980626
  3. ADALAT [Concomitant]
     Route: 048
  4. LOSEC                              /00661201/ [Concomitant]
     Route: 048
  5. HYDROCHLOROTHIAZIDE [Concomitant]
     Indication: HYPERTENSION
     Route: 048
  6. CLINORIL [Concomitant]

REACTIONS (18)
  - ABDOMINAL DISCOMFORT [None]
  - ANOREXIA [None]
  - ASPARTATE AMINOTRANSFERASE INCREASED [None]
  - BLOOD ALKALINE PHOSPHATASE INCREASED [None]
  - CHILLS [None]
  - CHROMATURIA [None]
  - FAECES PALE [None]
  - GAMMA-GLUTAMYLTRANSFERASE INCREASED [None]
  - HEPATITIS [None]
  - HYPERBILIRUBINAEMIA [None]
  - JAUNDICE [None]
  - LIVER FUNCTION TEST ABNORMAL [None]
  - MYALGIA [None]
  - NAUSEA [None]
  - OEDEMA [None]
  - PYREXIA [None]
  - RASH [None]
  - SCLERAL DISCOLOURATION [None]
